FAERS Safety Report 18770056 (Version 2)
Quarter: 2021Q1

REPORT INFORMATION
  Report Type: Spontaneous
  Country: US (occurrence: US)
  Receive Date: 20210121
  Receipt Date: 20210202
  Transmission Date: 20210419
  Serious: Yes (Other)
  Sender: FDA-Public Use
  Company Number: US-ALLERGAN-2102976US

PATIENT
  Sex: Male

DRUGS (3)
  1. DURYSTA [Suspect]
     Active Substance: BIMATOPROST
     Indication: PIGMENTARY GLAUCOMA
     Dosage: 10 ?G, SINGLE
     Route: 031
  2. LATANOPROST. [Concomitant]
     Active Substance: LATANOPROST
     Indication: PIGMENTARY GLAUCOMA
  3. DURYSTA [Suspect]
     Active Substance: BIMATOPROST
     Indication: PIGMENTARY GLAUCOMA
     Dosage: 10 ?G, SINGLE
     Route: 031

REACTIONS (3)
  - Intraocular pressure fluctuation [Unknown]
  - Intraocular pressure increased [Unknown]
  - Therapeutic response decreased [Unknown]

NARRATIVE: CASE EVENT DATE: 20210115
